FAERS Safety Report 5907688-4 (Version None)
Quarter: 2008Q4

REPORT INFORMATION
  Report Type: 
  Country: None (occurrence: None)
  Receive Date: 20081003
  Receipt Date: 19990325
  Transmission Date: 20090506
  Serious: Yes (Death, Hospitalization)
  Sender: FDA-Public Use
  Company Number: US-ROCHE-203231

PATIENT
  Sex: Female

DRUGS (3)
  1. XELODA [Suspect]
     Dosage: CYCLE 2 DOSE INCREASED.  GIVEN ON DAYS 1-14 EVERY 3 WEEKS.
     Route: 048
     Dates: start: 19990228, end: 19990314
  2. XELODA [Suspect]
     Dosage: AS INTERMITENT THERAPY (2 WEEKS TREATMENT, 1 WEEK REST)
     Route: 048
     Dates: start: 19990207, end: 19990221
  3. STEROIDS [Concomitant]
     Route: 048

REACTIONS (10)
  - ABDOMINAL PAIN [None]
  - BLOOD GLUCOSE INCREASED [None]
  - BREAST CANCER METASTATIC [None]
  - CARDIAC ARREST [None]
  - DIARRHOEA [None]
  - KETOACIDOSIS [None]
  - MUCOSAL INFLAMMATION [None]
  - ORTHOSTATIC HYPOTENSION [None]
  - PYREXIA [None]
  - SHOCK [None]
